FAERS Safety Report 13408472 (Version 1)
Quarter: 2017Q2

REPORT INFORMATION
  Report Type: Spontaneous
  Country: US (occurrence: US)
  Receive Date: 20170406
  Receipt Date: 20170406
  Transmission Date: 20170830
  Serious: No
  Sender: FDA-Public Use
  Company Number: US-AMGEN-USASP2017049281

PATIENT
  Age: 64 Year
  Sex: Male

DRUGS (6)
  1. RAYOS [Concomitant]
     Active Substance: PREDNISONE
     Dosage: 50 MG, UNK
  2. IBUPROFEN. [Concomitant]
     Active Substance: IBUPROFEN
     Dosage: UNK
  3. ENBREL [Suspect]
     Active Substance: ETANERCEPT
     Indication: RHEUMATOID ARTHRITIS
     Dosage: 50 MG, QWK
     Route: 065
  4. CARDIZEM [Concomitant]
     Active Substance: DILTIAZEM HYDROCHLORIDE
     Dosage: UNK
  5. ENBREL [Suspect]
     Active Substance: ETANERCEPT
     Indication: ARTHRITIS
  6. HYDROCODONE [Concomitant]
     Active Substance: HYDROCODONE
     Dosage: UNK

REACTIONS (1)
  - Laceration [Not Recovered/Not Resolved]
